FAERS Safety Report 11912951 (Version 1)
Quarter: 2016Q1

REPORT INFORMATION
  Report Type: Spontaneous
  Country: US (occurrence: US)
  Receive Date: 20160113
  Receipt Date: 20160113
  Transmission Date: 20160526
  Serious: Yes (Hospitalization, Other)
  Sender: FDA-Public Use
  Company Number: US-BAYER-2016-001960

PATIENT
  Sex: Female

DRUGS (8)
  1. ISOSORBIDE MONONITRATE. [Concomitant]
     Active Substance: ISOSORBIDE MONONITRATE
     Dosage: 30 MG, QD
     Dates: start: 20140128
  2. TRAMADOL. [Concomitant]
     Active Substance: TRAMADOL
     Dosage: 50 MG, UNK
     Dates: start: 20151103
  3. VENTOLIN HFA [Concomitant]
     Active Substance: ALBUTEROL SULFATE
     Dosage: 90 MCG/L, PRN
     Route: 055
     Dates: start: 20140128
  4. LOSARTAN. [Concomitant]
     Active Substance: LOSARTAN
     Dosage: 15 MG, QD
     Dates: start: 20151103
  5. NITROSTAT [Concomitant]
     Active Substance: NITROGLYCERIN
     Dosage: 0.4 MG, UNK
     Route: 060
     Dates: start: 20140128
  6. CIPRO [Suspect]
     Active Substance: CIPROFLOXACIN HYDROCHLORIDE
     Dosage: 750 MG, PRN
     Dates: start: 20140128
  7. CRIZOTINIB [Concomitant]
     Active Substance: CRIZOTINIB
     Dosage: 250 MG, BID
     Dates: start: 20151215
  8. METOPROLOL TARTRATE. [Concomitant]
     Active Substance: METOPROLOL TARTRATE
     Dosage: 25 MG, BID
     Dates: start: 20140128

REACTIONS (1)
  - Diverticulitis [None]
